FAERS Safety Report 4329863-5 (Version None)
Quarter: 2004Q1

REPORT INFORMATION
  Report Type: 
  Country: None (occurrence: None)
  Receive Date: 20040329
  Receipt Date: 20040315
  Transmission Date: 20041129
  Serious: Yes (Hospitalization)
  Sender: FDA-Public Use
  Company Number: 2003176140JP

PATIENT
  Age: 57 Year
  Sex: Female

DRUGS (5)
  1. EPIRUBICIN [Suspect]
     Indication: BREAST CANCER
     Dosage: 57.2 MG, CYCLIC, IV
     Route: 042
     Dates: start: 20030204
  2. DECADRON [Suspect]
     Indication: PROPHYLAXIS
     Dosage: 16 MG, QD, ORAL
     Route: 048
     Dates: start: 20030204, end: 20030205
  3. TAXOTERE [Concomitant]
  4. ANASTROZOLE [Concomitant]
  5. NASEA [Concomitant]

REACTIONS (1)
  - LEUKOCYTOSIS [None]
